FAERS Safety Report 16332589 (Version 2)
Quarter: 2019Q2

REPORT INFORMATION
  Report Type: Report from Study
  Country: US (occurrence: US)
  Receive Date: 20190520
  Receipt Date: 20190603
  Transmission Date: 20190711
  Serious: No
  Sender: FDA-Public Use
  Company Number: US-AMGEN-USASP2019076661

PATIENT
  Age: 57 Year
  Sex: Male

DRUGS (7)
  1. VITAMIN D3 [Concomitant]
     Active Substance: CHOLECALCIFEROL
     Dosage: 5000 INTERNATIONAL UNIT, QD
  2. REPATHA [Suspect]
     Active Substance: EVOLOCUMAB
     Indication: BLOOD CHOLESTEROL INCREASED
     Dosage: 140 MILLIGRAM, Q2WK
     Route: 065
     Dates: start: 20190108
  3. BISOPROLOL [Concomitant]
     Active Substance: BISOPROLOL
     Indication: HYPERTENSION
     Dosage: 10 MILLIGRAM, QD
  4. LOVAZA [Concomitant]
     Active Substance: OMEGA-3-ACID ETHYL ESTERS
     Indication: STENT PLACEMENT
     Dosage: 4 GRAM, QD
  5. PLAVIX [Concomitant]
     Active Substance: CLOPIDOGREL BISULFATE
     Indication: STENT PLACEMENT
     Dosage: 75 MILLIGRAM, QD
  6. VITAMIN E [Concomitant]
     Active Substance: .ALPHA.-TOCOPHEROL
     Indication: STENT PLACEMENT
     Dosage: 400 INTERNATIONAL UNIT, QD
  7. LOSARTAN. [Concomitant]
     Active Substance: LOSARTAN
     Indication: HYPERTENSION
     Dosage: 50 MILLIGRAM, QD

REACTIONS (10)
  - Sluggishness [Recovering/Resolving]
  - Dizziness [Unknown]
  - Renal disorder [Unknown]
  - Flushing [Unknown]
  - Vision blurred [Unknown]
  - Hypertension [Recovering/Resolving]
  - Erythema [Unknown]
  - Nausea [Unknown]
  - Adverse drug reaction [Unknown]
  - Blood glucose increased [Unknown]

NARRATIVE: CASE EVENT DATE: 20190416
